FAERS Safety Report 4846593-1 (Version None)
Quarter: 2005Q4

REPORT INFORMATION
  Report Type: 
  Country: None (occurrence: None)
  Receive Date: 20051202
  Receipt Date: 20051118
  Transmission Date: 20060501
  Serious: Yes (Death, Hospitalization, Other)
  Sender: FDA-Public Use
  Company Number: US-2005-000749

PATIENT
  Age: 49 Year
  Sex: Male
  Weight: 125.6 kg

DRUGS (4)
  1. GM-CSF (SARGRAMOSTIM) INJECTION [Suspect]
     Indication: MALIGNANT MELANOMA
     Dosage: 250 UG/DAY, 14D ON; 14D OFF, SUBCUTANEOUS
     Route: 058
     Dates: start: 20020130, end: 20050105
  2. PROPRANOL (PROPRANOLOL) [Concomitant]
  3. MOTRIN [Concomitant]
  4. NEURONTIN [Concomitant]

REACTIONS (6)
  - ACUTE MYELOID LEUKAEMIA [None]
  - CHROMOSOME ABNORMALITY [None]
  - COCCIDIOIDOMYCOSIS [None]
  - DEEP VEIN THROMBOSIS [None]
  - PULMONARY COCCIDIOIDES [None]
  - RENAL FAILURE [None]
